FAERS Safety Report 24796013 (Version 5)
Quarter: 2025Q1

REPORT INFORMATION
  Report Type: Spontaneous
  Country: US (occurrence: US)
  Receive Date: 20250101
  Receipt Date: 20250128
  Transmission Date: 20250408
  Serious: No
  Sender: SANOFI AVENTIS
  Company Number: US-SANOFI-02355495

PATIENT
  Age: 76 Year
  Sex: Male

DRUGS (2)
  1. APIDRA [Suspect]
     Active Substance: INSULIN GLULISINE
     Indication: Type 2 diabetes mellitus
     Dosage: 15 - 20 IU; 3 OR 4 TIMES A DAY BUT MOST OF THE TIME, JUST 3 TIMES A DAY
     Route: 065
     Dates: start: 2024
  2. APIDRA [Suspect]
     Active Substance: INSULIN GLULISINE
     Dosage: 60-80 UNITS, QD

REACTIONS (3)
  - Visual impairment [Unknown]
  - Renal disorder [Unknown]
  - Intentional product misuse [Unknown]

NARRATIVE: CASE EVENT DATE: 20240101
